FAERS Safety Report 5822833-7 (Version None)
Quarter: 2008Q3

REPORT INFORMATION
  Report Type: 
  Country: None (occurrence: None)
  Receive Date: 20080725
  Receipt Date: 20080714
  Transmission Date: 20090109
  Serious: Yes (Hospitalization)
  Sender: FDA-Public Use
  Company Number: ES-BRISTOL-MYERS SQUIBB COMPANY-14276901

PATIENT
  Age: 75 Year
  Sex: Female

DRUGS (9)
  1. CYCLOPHOSPHAMIDE [Suspect]
     Indication: DIFFUSE LARGE B-CELL LYMPHOMA
     Dosage: FIRST CYCLE STARTED ON 19FEB07 1125MG IV AS NEEDED
     Route: 042
     Dates: start: 20070305, end: 20070305
  2. VINCRISTINE SULFATE [Suspect]
     Indication: DIFFUSE LARGE B-CELL LYMPHOMA
     Dosage: FIRST CYCLE STARTED ON 19FEB07 IV 2 MG AS NEEDED.
     Route: 042
     Dates: start: 20070305, end: 20070305
  3. DOXORUBICIN HCL [Suspect]
     Indication: DIFFUSE LARGE B-CELL LYMPHOMA
     Dosage: FIRST CYCLE STARTED ON 19FEB07 IV 75 MG AS NEEDED.
     Route: 042
     Dates: start: 20070305, end: 20070305
  4. NEULASTA [Suspect]
     Indication: DIFFUSE LARGE B-CELL LYMPHOMA
     Dosage: FIRST CYCLE STARTED ON 20FEB07 SC, 6 MG AS NEEDED.
     Route: 058
     Dates: start: 20070313, end: 20070313
  5. RITUXIMAB [Suspect]
     Indication: DIFFUSE LARGE B-CELL LYMPHOMA
     Dosage: FIRST CYCLE STARTED ON 19FEB07 IV AS NEEDED.
     Route: 042
     Dates: start: 20070305, end: 20070305
  6. PREDNISONE TAB [Suspect]
     Indication: DIFFUSE LARGE B-CELL LYMPHOMA
     Dosage: FIRST CYCLE STARTED ON 19FEB07 IV 100 MG AS NEEDED.
     Route: 042
     Dates: start: 20070305, end: 20070305
  7. TARKA [Concomitant]
     Route: 048
     Dates: start: 20060101
  8. ASPIRIN [Concomitant]
     Route: 048
     Dates: start: 20030101
  9. ATORVASTATIN CALCIUM [Concomitant]
     Route: 048

REACTIONS (3)
  - BACTEROIDES INFECTION [None]
  - LUMBAR VERTEBRAL FRACTURE [None]
  - OSTEOMYELITIS ACUTE [None]
